FAERS Safety Report 10457697 (Version 1)
Quarter: 2014Q3

REPORT INFORMATION
  Report Type: Spontaneous
  Country: FR (occurrence: FR)
  Receive Date: 20140916
  Receipt Date: 20140916
  Transmission Date: 20150326
  Serious: Yes (Death)
  Sender: FDA-Public Use
  Company Number: FR-CUBIST PHARMACEUTICALS, INC.-2014CBST001285

PATIENT

DRUGS (3)
  1. CUBICIN [Suspect]
     Active Substance: DAPTOMYCIN
     Indication: OFF LABEL USE
  2. CUBICIN [Suspect]
     Active Substance: DAPTOMYCIN
     Indication: GRAFT INFECTION
     Dosage: }8 MG/KG, QD
     Route: 065
  3. BETA-LACTAM ANTIBACTERIALS [Concomitant]
     Indication: GRAFT INFECTION
     Dosage: UNK, UNK, UNK
     Route: 065

REACTIONS (2)
  - Graft infection [Fatal]
  - Vascular graft complication [Fatal]
